FAERS Safety Report 6852449-5 (Version None)
Quarter: 2010Q3

REPORT INFORMATION
  Report Type: 
  Country: None (occurrence: None)
  Receive Date: 20100717
  Receipt Date: 20071115
  Transmission Date: 20110219
  Serious: Yes (Other)
  Sender: FDA-Public Use
  Company Number: US-PFIZER INC-2007098221

PATIENT

DRUGS (1)
  1. CHANTIX [Suspect]

REACTIONS (1)
  - MULTIPLE SCLEROSIS [None]
